FAERS Safety Report 24990898 (Version 1)
Quarter: 2025Q1

REPORT INFORMATION
  Report Type: Spontaneous
  Country: US (occurrence: None)
  Receive Date: 20250220
  Receipt Date: 20250220
  Transmission Date: 20250408
  Serious: Yes (Death)
  Sender: FDA-CTU
  Company Number: None

PATIENT
  Sex: Female

DRUGS (6)
  1. GENOTROPIN [Suspect]
     Active Substance: SOMATROPIN
     Indication: Turner^s syndrome
     Dosage: FREQUENCY : DAILY;?
     Dates: start: 20240914
  2. ALBUTEROL NEB 0.63MG/3 [Concomitant]
  3. FLONASE ALGY SPR 50MCG [Concomitant]
  4. GENOTROPIN MINIOUICK [Concomitant]
  5. HYDROXYUREA [Concomitant]
     Active Substance: HYDROXYUREA
  6. MIRALAX POW 3350 NF [Concomitant]

REACTIONS (1)
  - Death [None]
